FAERS Safety Report 6126549-1 (Version None)
Quarter: 2009Q1

REPORT INFORMATION
  Report Type: 
  Country: None (occurrence: None)
  Receive Date: 20090320
  Receipt Date: 20090312
  Transmission Date: 20090719
  Serious: Yes (Hospitalization, Other)
  Sender: FDA-Public Use
  Company Number: US-ABBOTT-09P-163-0562186-00

PATIENT
  Sex: Male
  Weight: 107.14 kg

DRUGS (25)
  1. TRICOR [Suspect]
     Indication: BLOOD TRIGLYCERIDES INCREASED
     Dates: end: 20090301
  2. TRICOR [Suspect]
     Indication: HIGH DENSITY LIPOPROTEIN DECREASED
  3. TRILIPIX [Suspect]
     Indication: BLOOD TRIGLYCERIDES INCREASED
     Route: 048
     Dates: start: 20090304, end: 20090312
  4. TRILIPIX [Suspect]
     Indication: HIGH DENSITY LIPOPROTEIN DECREASED
  5. INSPRA [Concomitant]
     Indication: DRUG USE FOR UNKNOWN INDICATION
  6. COREG [Concomitant]
     Indication: DRUG USE FOR UNKNOWN INDICATION
  7. IMDUR [Concomitant]
     Indication: DRUG USE FOR UNKNOWN INDICATION
  8. DDAVP [Concomitant]
     Indication: DRUG USE FOR UNKNOWN INDICATION
  9. K-TAB [Concomitant]
     Indication: DRUG USE FOR UNKNOWN INDICATION
     Route: 048
  10. LASIX [Concomitant]
     Indication: DRUG USE FOR UNKNOWN INDICATION
  11. LOVAZA [Concomitant]
     Indication: DRUG USE FOR UNKNOWN INDICATION
  12. MAGNESIUM SULFATE [Concomitant]
     Indication: DRUG USE FOR UNKNOWN INDICATION
  13. PLAVIX [Concomitant]
     Indication: DRUG USE FOR UNKNOWN INDICATION
  14. PRENAVIL [Concomitant]
     Indication: DRUG USE FOR UNKNOWN INDICATION
  15. ZEGERID [Concomitant]
     Indication: DRUG USE FOR UNKNOWN INDICATION
  16. ZOCOR [Concomitant]
     Indication: DRUG USE FOR UNKNOWN INDICATION
  17. VITAMIN D3 [Concomitant]
     Indication: DRUG USE FOR UNKNOWN INDICATION
  18. CORTEF [Concomitant]
     Indication: DRUG USE FOR UNKNOWN INDICATION
     Route: 048
  19. SYNTHROID [Concomitant]
     Indication: DRUG USE FOR UNKNOWN INDICATION
  20. LEXAPRO [Concomitant]
     Indication: DRUG USE FOR UNKNOWN INDICATION
  21. TESTOSTERONE CREAM 6.5% [Concomitant]
     Indication: DRUG USE FOR UNKNOWN INDICATION
  22. HUMATROPE [Concomitant]
     Indication: DRUG USE FOR UNKNOWN INDICATION
     Route: 050
  23. HUMALOG [Concomitant]
     Indication: DRUG USE FOR UNKNOWN INDICATION
  24. HUMALIN U 500 R [Concomitant]
     Indication: DRUG USE FOR UNKNOWN INDICATION
  25. M.V.I. [Concomitant]
     Indication: DRUG USE FOR UNKNOWN INDICATION

REACTIONS (7)
  - AORTIC THROMBOSIS [None]
  - CARDIAC DISORDER [None]
  - CATARACT [None]
  - CORONARY ARTERY OCCLUSION [None]
  - CUSHING'S SYNDROME [None]
  - HYPERCHLORHYDRIA [None]
  - MUSCLE SPASMS [None]
